FAERS Safety Report 23849087 (Version 5)
Quarter: 2025Q1

REPORT INFORMATION
  Report Type: Spontaneous
  Country: US (occurrence: US)
  Receive Date: 20240513
  Receipt Date: 20250303
  Transmission Date: 20250409
  Serious: Yes (Disabling)
  Sender: SANOFI AVENTIS
  Company Number: US-SA-SAC20240503000388

PATIENT
  Age: 74 Year
  Sex: Female
  Weight: 90.7 kg

DRUGS (20)
  1. DUPIXENT [Suspect]
     Active Substance: DUPILUMAB
     Indication: Asthma
     Route: 058
     Dates: start: 202404, end: 202404
  2. DUPIXENT [Suspect]
     Active Substance: DUPILUMAB
     Dosage: 300 MG, QOW
     Route: 058
     Dates: start: 20240408
  3. MYRBETRIQ [Concomitant]
     Active Substance: MIRABEGRON
  4. VITAMIN D3 [Concomitant]
     Active Substance: CHOLECALCIFEROL
  5. VITAMIN C [Concomitant]
     Active Substance: ASCORBIC ACID
  6. TRAZODONE HCL [Concomitant]
     Active Substance: TRAZODONE HYDROCHLORIDE
  7. MONTELUKAST SODIUM [Concomitant]
     Active Substance: MONTELUKAST SODIUM
  8. ROPINIROLE HYDROCHLORIDE [Concomitant]
     Active Substance: ROPINIROLE HYDROCHLORIDE
  9. ACETAMINOPHEN\HYDROCODONE [Concomitant]
     Active Substance: ACETAMINOPHEN\HYDROCODONE
  10. ALBUTEROL SULFATE [Concomitant]
     Active Substance: ALBUTEROL SULFATE
  11. BREZTRI [Concomitant]
     Active Substance: BUDESONIDE\FORMOTEROL\GLYCOPYRROLATE
  12. VENTOLIN HFA [Concomitant]
     Active Substance: ALBUTEROL SULFATE
  13. MAGNESIUM [Concomitant]
     Active Substance: MAGNESIUM
  14. CYANOCOBALAMIN [Concomitant]
     Active Substance: CYANOCOBALAMIN
  15. CALCIUM\CHOLECALCIFEROL [Concomitant]
     Active Substance: CALCIUM\CHOLECALCIFEROL
  16. PROTONIX [Concomitant]
     Active Substance: PANTOPRAZOLE SODIUM
  17. PROMETHAZINE [Concomitant]
     Active Substance: PROMETHAZINE HYDROCHLORIDE
  18. ALBUTEROL\IPRATROPIUM [Concomitant]
     Active Substance: ALBUTEROL\IPRATROPIUM
  19. RESTASIS [Concomitant]
     Active Substance: CYCLOSPORINE
  20. AMOXICILLIN\CLAVULANATE POTASSIUM [Concomitant]
     Active Substance: AMOXICILLIN\CLAVULANATE POTASSIUM

REACTIONS (7)
  - Loss of personal independence in daily activities [Unknown]
  - Headache [Unknown]
  - Hot flush [Unknown]
  - Feeling hot [Unknown]
  - Dyspnoea [Recovering/Resolving]
  - Skin burning sensation [Unknown]
  - Injection site pain [Unknown]

NARRATIVE: CASE EVENT DATE: 20240101
